FAERS Safety Report 9173748 (Version 1)
Quarter: 2013Q1

REPORT INFORMATION
  Report Type: Spontaneous
  Country: SE (occurrence: SE)
  Receive Date: 20130320
  Receipt Date: 20130320
  Transmission Date: 20140127
  Serious: Yes (Other)
  Sender: FDA-Public Use
  Company Number: SE-JNJFOC-20130306539

PATIENT
  Age: 60 Year
  Sex: 0

DRUGS (3)
  1. REMICADE [Suspect]
     Indication: PSORIASIS
     Route: 042
     Dates: start: 20130221
  2. WARAN [Suspect]
     Indication: SURGERY
     Route: 065
  3. BISOPROLOL [Concomitant]
     Route: 065

REACTIONS (2)
  - Dizziness [Not Recovered/Not Resolved]
  - International normalised ratio increased [Unknown]
